FAERS Safety Report 10347086 (Version 2)
Quarter: 2014Q3

REPORT INFORMATION
  Report Type: Spontaneous
  Country: GB (occurrence: GB)
  Receive Date: 20140729
  Receipt Date: 20140729
  Transmission Date: 20150326
  Serious: Yes (Life-Threatening)
  Sender: FDA-Public Use
  Company Number: GB-TEVA-493489ISR

PATIENT
  Age: 65 Year
  Sex: Male
  Weight: 100 kg

DRUGS (4)
  1. XELODA [Suspect]
     Active Substance: CAPECITABINE
     Indication: GASTROOESOPHAGEAL CANCER
     Dosage: DOSE GIVEN AT MOST RECENT ADMINISTRATION WAS TAKEN ON 27/AUG/2010; 52500 MG
     Route: 048
     Dates: start: 20100709
  2. CISPLATIN. [Suspect]
     Active Substance: CISPLATIN
     Indication: GASTROOESOPHAGEAL CANCER
     Dosage: DOSE GIVEN AT MOST RECENT ADMINISTRATION WAS TAKEN ON 27/AUG/2010;132 MG
     Route: 042
     Dates: start: 20100709
  3. EPIRUBICIN [Suspect]
     Active Substance: EPIRUBICIN
     Indication: GASTROOESOPHAGEAL CANCER
     Dosage: DOSE GIVEN AT RECENT ADMINISTRATION WAS TAKEN ON 27/AUG/2010, 110 MG
     Route: 042
     Dates: start: 20100709
  4. AVASTIN [Suspect]
     Active Substance: BEVACIZUMAB
     Indication: GASTROOESOPHAGEAL CANCER
     Dosage: DOSE GIVEN AT MOST RECENT ADMINISTRATION WAS TAKEN ON 27/AUG/2010; 775 MG
     Route: 042
     Dates: start: 20100709

REACTIONS (1)
  - Pulmonary embolism [Recovered/Resolved]

NARRATIVE: CASE EVENT DATE: 201010
